FAERS Safety Report 10038863 (Version 1)
Quarter: 2014Q1

REPORT INFORMATION
  Report Type: Spontaneous
  Country: US (occurrence: None)
  Receive Date: 20140306
  Receipt Date: 20140306
  Transmission Date: 20141002
  Serious: Yes (Hospitalization)
  Sender: FDA-Public Use
  Company Number: 163-21880-13063263

PATIENT
  Age: 55 Year
  Sex: Male
  Weight: 95.3 kg

DRUGS (4)
  1. REVLIMID [Suspect]
     Indication: PLASMA CELL MYELOMA
     Route: 048
     Dates: start: 200909, end: 2010
  2. OXYCODONE/ACETAMINOPHEN [Concomitant]
  3. LISINOPRIL [Concomitant]
  4. ZYRTEC [Concomitant]

REACTIONS (1)
  - Pulmonary embolism [None]
